FAERS Safety Report 17842460 (Version 3)
Quarter: 2021Q1

REPORT INFORMATION
  Report Type: Report from Study
  Country: US (occurrence: US)
  Receive Date: 20200529
  Receipt Date: 20210226
  Transmission Date: 20210419
  Serious: Yes (Other)
  Sender: FDA-Public Use
  Company Number: US-JAZZ-2020-US-006003

PATIENT
  Sex: Female

DRUGS (13)
  1. MELOXICAM. [Concomitant]
     Active Substance: MELOXICAM
     Indication: HEADACHE
  2. PROMETHAZINE [Concomitant]
     Active Substance: PROMETHAZINE HYDROCHLORIDE
     Indication: NAUSEA
  3. XYREM [Suspect]
     Active Substance: SODIUM OXYBATE
     Indication: NARCOLEPSY
     Dosage: 2.25 GRAM, BID
     Route: 048
     Dates: start: 202001, end: 202001
  4. XYREM [Suspect]
     Active Substance: SODIUM OXYBATE
     Dosage: 4.25 GRAM, QD
     Route: 048
     Dates: start: 2020
  5. DOXYCYCLINE. [Concomitant]
     Active Substance: DOXYCYCLINE
     Indication: DERMATITIS
  6. GABAPENTIN. [Concomitant]
     Active Substance: GABAPENTIN
     Indication: PRODUCT USED FOR UNKNOWN INDICATION
  7. ONDANSETRON HCL [Concomitant]
     Active Substance: ONDANSETRON HYDROCHLORIDE
     Indication: NAUSEA
  8. METHOCARBAMOL. [Concomitant]
     Active Substance: METHOCARBAMOL
     Indication: PRODUCT USED FOR UNKNOWN INDICATION
  9. XYREM [Suspect]
     Active Substance: SODIUM OXYBATE
     Dosage: DOSE ADJUSTMENT
     Route: 048
     Dates: start: 202001, end: 2020
  10. BUPROPION HCL [Concomitant]
     Active Substance: BUPROPION HYDROCHLORIDE
     Indication: PRODUCT USED FOR UNKNOWN INDICATION
  11. FROVA [Concomitant]
     Active Substance: FROVATRIPTAN SUCCINATE
     Indication: MIGRAINE
  12. ESCITALOPRAM [Concomitant]
     Active Substance: ESCITALOPRAM OXALATE
     Indication: PRODUCT USED FOR UNKNOWN INDICATION
  13. OXYCODONE AND ACETAMINOPHEN [Concomitant]
     Active Substance: ACETAMINOPHEN\OXYCODONE HYDROCHLORIDE
     Indication: PRODUCT USED FOR UNKNOWN INDICATION

REACTIONS (2)
  - Dehydration [Not Recovered/Not Resolved]
  - Cerebral arteriovenous malformation haemorrhagic [Not Recovered/Not Resolved]
